FAERS Safety Report 21627869 (Version 1)
Quarter: 2022Q4

REPORT INFORMATION
  Report Type: Spontaneous
  Country: US (occurrence: None)
  Receive Date: 20221121
  Receipt Date: 20221121
  Transmission Date: 20230112
  Serious: Yes (unspecified)
  Sender: FDA-Public Use
  Company Number: None

PATIENT
  Age: 55 Year
  Sex: Male
  Weight: 122.47 kg

DRUGS (9)
  1. NOVOLOG [Suspect]
     Active Substance: INSULIN ASPART
     Indication: Type 2 diabetes mellitus
     Dosage: FREQUENCY : 3 TIMES A DAY;?
     Route: 058
     Dates: start: 20221001, end: 20221015
  2. DECCOM [Concomitant]
  3. TACROLIMUS [Concomitant]
     Active Substance: TACROLIMUS
  4. MYCOPHENOLATE MOFETIL [Concomitant]
     Active Substance: MYCOPHENOLATE MOFETIL
  5. PREDNISONE [Concomitant]
     Active Substance: PREDNISONE
  6. PREDNISONE [Concomitant]
     Active Substance: PREDNISONE
  7. SYNTHROID [Concomitant]
     Active Substance: LEVOTHYROXINE SODIUM
  8. ASPIRIN [Concomitant]
     Active Substance: ASPIRIN
  9. UNSPECIFIED INGREDIENT [Concomitant]
     Active Substance: UNSPECIFIED INGREDIENT

REACTIONS (4)
  - Blood glucose fluctuation [None]
  - Drug ineffective [None]
  - Insurance issue [None]
  - Product quality issue [None]

NARRATIVE: CASE EVENT DATE: 20221015
